FAERS Safety Report 8608023-3 (Version None)
Quarter: 2012Q3

REPORT INFORMATION
  Report Type: 
  Country: None (occurrence: None)
  Receive Date: 20120821
  Receipt Date: 20120731
  Transmission Date: 20120928
  Serious: Yes (Congenital Anomaly, Other)
  Sender: FDA-Public Use
  Company Number: RO-NOVOPROD-356382

PATIENT

DRUGS (4)
  1. METFORMIN HCL [Concomitant]
     Indication: FOETAL EXPOSURE DURING PREGNANCY
  2. GLICLAZIDE [Concomitant]
     Indication: FOETAL EXPOSURE DURING PREGNANCY
  3. FOLIC ACID [Concomitant]
     Indication: FOETAL EXPOSURE DURING PREGNANCY
  4. ACTRAPID [Suspect]
     Route: 064

REACTIONS (4)
  - PREMATURE BABY [None]
  - HYPOGLYCAEMIA NEONATAL [None]
  - VENTRICULAR SEPTAL DEFECT [None]
  - FOETAL EXPOSURE DURING PREGNANCY [None]
